FAERS Safety Report 7398406-4 (Version None)
Quarter: 2011Q2

REPORT INFORMATION
  Report Type: 
  Country: None (occurrence: None)
  Receive Date: 20110406
  Receipt Date: 20110325
  Transmission Date: 20111010
  Serious: Yes (Hospitalization)
  Sender: FDA-Public Use
  Company Number: US-BRISTOL-MYERS SQUIBB COMPANY-15540776

PATIENT
  Age: 53 Year
  Sex: Male

DRUGS (1)
  1. IPILIMUMAB [Suspect]
     Indication: MALIGNANT MELANOMA
     Dosage: NO OF COURSES=3.
     Route: 042
     Dates: start: 20101118, end: 20101229

REACTIONS (3)
  - VISION BLURRED [None]
  - BLINDNESS UNILATERAL [None]
  - HYPOPHYSITIS [None]
